FAERS Safety Report 6582787-5 (Version None)
Quarter: 2010Q1

REPORT INFORMATION
  Report Type: 
  Country: None (occurrence: None)
  Receive Date: 20100216
  Receipt Date: 20100203
  Transmission Date: 20100710
  Serious: Yes (Life-Threatening)
  Sender: FDA-Public Use
  Company Number: JP-PFIZER INC-2010015267

PATIENT
  Age: 42 Year
  Sex: Male

DRUGS (1)
  1. ZITHROMAX [Suspect]
     Indication: PYREXIA
     Dosage: 500MG/DAY
     Route: 048
     Dates: start: 20100119, end: 20100121

REACTIONS (1)
  - INTERSTITIAL LUNG DISEASE [None]
